FAERS Safety Report 12273731 (Version 1)
Quarter: 2016Q2

REPORT INFORMATION
  Report Type: Spontaneous
  Country: US (occurrence: US)
  Receive Date: 20160415
  Receipt Date: 20160415
  Transmission Date: 20160815
  Serious: No
  Sender: FDA-Public Use
  Company Number: ADR-2015-01197

PATIENT
  Age: 84 Year
  Sex: Male

DRUGS (15)
  1. INSULIN LISPRO [Suspect]
     Active Substance: INSULIN LISPRO
  2. PRAVASTATIN [Suspect]
     Active Substance: PRAVASTATIN\PRAVASTATIN SODIUM
  3. LOTRISONE [Suspect]
     Active Substance: BETAMETHASONE DIPROPIONATE\CLOTRIMAZOLE
     Route: 061
  4. LEXAPRO [Suspect]
     Active Substance: ESCITALOPRAM OXALATE
  5. TYLENOL [Suspect]
     Active Substance: ACETAMINOPHEN
  6. LEVOTHYROXINE. [Suspect]
     Active Substance: LEVOTHYROXINE
  7. PERCOCET [Suspect]
     Active Substance: ACETAMINOPHEN\OXYCODONE HYDROCHLORIDE
  8. ASPIRIN. [Suspect]
     Active Substance: ASPIRIN
  9. METFORMIN [Suspect]
     Active Substance: METFORMIN HYDROCHLORIDE
  10. WARFARIN [Suspect]
     Active Substance: WARFARIN
  11. LIORESAL [Suspect]
     Active Substance: BACLOFEN
     Dosage: 39.95 MC/GDAY
     Route: 037
     Dates: start: 20150705, end: 20150618
  12. INSULIN GLARGINE [Suspect]
     Active Substance: INSULIN GLARGINE
  13. MAGNEISUM HYDROXIDE [Suspect]
     Active Substance: MAGNESIUM HYDROXIDE
  14. BENAZEPRIL [Suspect]
     Active Substance: BENAZEPRIL HYDROCHLORIDE
  15. VITAMIN D3 [Suspect]
     Active Substance: CHOLECALCIFEROL

REACTIONS (1)
  - Urinary retention [Recovered/Resolved]
